FAERS Safety Report 6879960-5 (Version None)
Quarter: 2010Q3

REPORT INFORMATION
  Report Type: 
  Country: None (occurrence: None)
  Receive Date: 20100728
  Receipt Date: 20100720
  Transmission Date: 20110219
  Serious: Yes (Death, Other)
  Sender: FDA-Public Use
  Company Number: NZ-TYCO HEALTHCARE/MALLINCKRODT-T201001690

PATIENT
  Age: 7 Week

DRUGS (1)
  1. METHADOSE [Suspect]
     Dosage: GREATER THAN 58 MG/DAY
     Route: 064

REACTIONS (2)
  - PREMATURE BABY [None]
  - SUDDEN INFANT DEATH SYNDROME [None]
